FAERS Safety Report 7152468-8 (Version None)
Quarter: 2010Q4

REPORT INFORMATION
  Report Type: 
  Country: None (occurrence: None)
  Receive Date: 20101208
  Receipt Date: 20101208
  Transmission Date: 20110411
  Serious: Yes (Other)
  Sender: FDA-Public Use
  Company Number: None

PATIENT
  Age: 43 Year
  Sex: Male
  Weight: 111.1313 kg

DRUGS (1)
  1. ZOLPIDEM [Suspect]
     Indication: INSOMNIA
     Dosage: 10 MG 1 PILL AT BEDTIME PO
     Route: 048
     Dates: start: 20100729, end: 20100815

REACTIONS (2)
  - DEPRESSION [None]
  - SUICIDAL IDEATION [None]
